FAERS Safety Report 15033078 (Version 1)
Quarter: 2018Q3

REPORT INFORMATION
  Report Type: Spontaneous
  Country: US (occurrence: US)
  Receive Date: 20180619
  Receipt Date: 20180619
  Transmission Date: 20181010
  Serious: No
  Sender: FDA-Public Use
  Company Number: US-AVADEL SPECIALTY PHARMACEUTICALS, LLC-2018AVA00053

PATIENT
  Age: 73 Year
  Sex: Female

DRUGS (5)
  1. NOCTIVA [Suspect]
     Active Substance: DESMOPRESSIN ACETATE
     Dosage: 0.83 ?G, 1X/DAY (IN EITHER NOSTRIL)
     Route: 045
     Dates: start: 20180505, end: 20180508
  2. CARVEDILOL. [Concomitant]
     Active Substance: CARVEDILOL
  3. MELATONIN [Concomitant]
     Active Substance: MELATONIN
  4. PROBIOTIC ACIDOPHIL [Concomitant]
  5. BACLOFEN. [Concomitant]
     Active Substance: BACLOFEN

REACTIONS (6)
  - Instillation site pain [None]
  - Throat irritation [Unknown]
  - Rhinorrhoea [Unknown]
  - Sneezing [Unknown]
  - Nasal discomfort [Unknown]
  - Instillation site discharge [None]

NARRATIVE: CASE EVENT DATE: 20180505
